FAERS Safety Report 9536981 (Version 6)
Quarter: 2014Q3

REPORT INFORMATION
  Report Type: Spontaneous
  Country: US (occurrence: US)
  Receive Date: 20130919
  Receipt Date: 20140707
  Transmission Date: 20150326
  Serious: Yes (Hospitalization, Other)
  Sender: FDA-Public Use
  Company Number: US-009507513-1309USA005402

PATIENT
  Sex: Female
  Weight: 81.18 kg

DRUGS (12)
  1. FOSAMAX [Suspect]
     Active Substance: ALENDRONATE SODIUM
     Indication: OSTEOPENIA
     Dosage: UNK
     Route: 048
     Dates: start: 19990804
  2. VITAMIN D [Concomitant]
     Active Substance: CHOLECALCIFEROL
     Dosage: 1 DF, QD
     Dates: start: 1990
  3. FOSAMAX [Suspect]
     Active Substance: ALENDRONATE SODIUM
     Indication: OSTEOPOROSIS
     Dosage: 70 MG, UNK
     Route: 048
     Dates: end: 20100622
  4. SEMPREX-D [Concomitant]
     Active Substance: ACRIVASTINE\PSEUDOEPHEDRINE HYDROCHLORIDE
     Indication: HYPERSENSITIVITY
     Dosage: UNK
     Dates: start: 19990111, end: 2000
  5. CLARITIN [Concomitant]
     Active Substance: LORATADINE
     Indication: HYPERSENSITIVITY
     Dosage: UNK
     Dates: start: 19990715, end: 20030307
  6. VERAPAMIL [Concomitant]
     Active Substance: VERAPAMIL HYDROCHLORIDE
     Indication: HYPERTENSION
     Dosage: 360 MG, QD
     Dates: start: 19990920, end: 20120322
  7. CARDURA [Concomitant]
     Active Substance: DOXAZOSIN MESYLATE
     Indication: HYPERTENSION
     Dosage: UNK
     Dates: start: 19980430, end: 20060420
  8. ALENDRONATE SODIUM. [Suspect]
     Active Substance: ALENDRONATE SODIUM
  9. VITAMINS (UNSPECIFIED) [Concomitant]
     Active Substance: VITAMINS
     Dosage: 1 DF, QD
     Dates: start: 1990
  10. ASCORBIC ACID. [Concomitant]
     Active Substance: ASCORBIC ACID
     Dosage: 1 DF, QD
     Dates: start: 1990
  11. ISOPTIN [Concomitant]
     Active Substance: VERAPAMIL HYDROCHLORIDE
     Indication: HYPERTENSION
     Dosage: UNK
     Dates: start: 19980430, end: 20061114
  12. PREMARIN [Concomitant]
     Active Substance: ESTROGENS, CONJUGATED
     Indication: MENOPAUSE
     Dosage: UNK
     Dates: start: 19980430, end: 20060420

REACTIONS (35)
  - Inflammation [Unknown]
  - Haemorrhoid operation [Unknown]
  - Hypoglycaemia [Unknown]
  - Joint swelling [Unknown]
  - Haemorrhagic anaemia [Unknown]
  - Hysterectomy [Unknown]
  - Fracture [Unknown]
  - Calcium deficiency [Unknown]
  - Respiratory disorder [Unknown]
  - Oral candidiasis [Unknown]
  - Medical device implantation [Unknown]
  - Intramedullary rod insertion [Unknown]
  - Enthesopathy [Unknown]
  - Urinary tract infection [Unknown]
  - Dry mouth [Unknown]
  - Femur fracture [Unknown]
  - Breast lump removal [Unknown]
  - Herpes virus infection [Unknown]
  - Pollakiuria [Unknown]
  - Exostosis [Unknown]
  - Cardiac murmur [Unknown]
  - Pyrexia [Unknown]
  - Arthralgia [Unknown]
  - Femur fracture [Recovering/Resolving]
  - Eye infection [Unknown]
  - Intramedullary rod insertion [Unknown]
  - Low turnover osteopathy [Unknown]
  - Adverse event [Unknown]
  - Medical device removal [Unknown]
  - Skin irritation [Unknown]
  - Pain [Unknown]
  - Arthritis [Unknown]
  - Eye pruritus [Unknown]
  - Foot fracture [Unknown]
  - Exostosis [Unknown]

NARRATIVE: CASE EVENT DATE: 2000
